FAERS Safety Report 16260558 (Version 1)
Quarter: 2019Q2

REPORT INFORMATION
  Report Type: Spontaneous
  Country: JP (occurrence: JP)
  Receive Date: 20190501
  Receipt Date: 20190501
  Transmission Date: 20190711
  Serious: Yes (Hospitalization)
  Sender: FDA-Public Use
  Company Number: JP-EISAI MEDICAL RESEARCH-EC-2019-055680

PATIENT
  Age: 60 Year
  Sex: Male
  Weight: 59 kg

DRUGS (2)
  1. LENVIMA [Suspect]
     Active Substance: LENVATINIB
     Indication: HEPATOCELLULAR CARCINOMA
     Route: 048
     Dates: start: 20181023, end: 20181218
  2. LENVIMA [Suspect]
     Active Substance: LENVATINIB
     Dosage: FIVE DAYS ON/TWO DAYS OFF REGIMEN EVERY WEEK
     Route: 048
     Dates: start: 20181225, end: 20190328

REACTIONS (2)
  - Interstitial lung disease [Recovering/Resolving]
  - Decreased appetite [Recovered/Resolved]

NARRATIVE: CASE EVENT DATE: 20181218
